FAERS Safety Report 26159919 (Version 1)
Quarter: 2025Q4

REPORT INFORMATION
  Report Type: Spontaneous
  Country: US (occurrence: US)
  Receive Date: 20251216
  Receipt Date: 20251216
  Transmission Date: 20260117
  Serious: Yes (Hospitalization, Other)
  Sender: BRISTOL-MYERS SQUIBB COMPANY
  Company Number: US-BRISTOL-MYERS SQUIBB COMPANY-2025-167955

PATIENT
  Age: 79 Year
  Sex: Female

DRUGS (1)
  1. POMALYST [Suspect]
     Active Substance: POMALIDOMIDE
     Indication: Plasma cell myeloma recurrent
     Dosage: ONCE DAILY
     Route: 048
     Dates: start: 20251108

REACTIONS (5)
  - Abdominal pain [Unknown]
  - Faecaloma [Unknown]
  - Pancytopenia [Unknown]
  - Proctalgia [Unknown]
  - Diarrhoea [Unknown]
